FAERS Safety Report 4722255-6 (Version None)
Quarter: 2005Q3

REPORT INFORMATION
  Report Type: 
  Country: None (occurrence: None)
  Receive Date: 20050722
  Receipt Date: 20040917
  Transmission Date: 20060218
  Serious: No
  Sender: FDA-Public Use
  Company Number: US-GLAXOSMITHKLINE-A0526637A

PATIENT
  Age: 62 Year
  Sex: Female

DRUGS (4)
  1. AVANDIA [Suspect]
     Dosage: 4MG PER DAY
     Route: 048
     Dates: start: 20040701
  2. INSULIN [Concomitant]
     Route: 065
  3. LASIX [Concomitant]
     Route: 065
  4. VIVELLE [Concomitant]
     Route: 065

REACTIONS (4)
  - MOUTH HAEMORRHAGE [None]
  - OEDEMA [None]
  - ORAL MUCOSAL BLISTERING [None]
  - ORAL PAIN [None]
